FAERS Safety Report 16577235 (Version 5)
Quarter: 2020Q2

REPORT INFORMATION
  Report Type: Spontaneous
  Country: CA (occurrence: CA)
  Receive Date: 20190716
  Receipt Date: 20200423
  Transmission Date: 20200713
  Serious: Yes (Hospitalization)
  Sender: FDA-Public Use
  Company Number: CA-AUROBINDO-AUR-APL-2019-039125

PATIENT
  Age: 52 Year
  Sex: Male

DRUGS (50)
  1. MOXIFLOXACIN. [Suspect]
     Active Substance: MOXIFLOXACIN
     Dosage: 3 DOSAGE FORM, ONCE A DAY
     Route: 065
  2. PREDNISONE ACETATE [Suspect]
     Active Substance: PREDNISONE ACETATE
     Dosage: 50 MILLIGRAM, 3 TIMES A DAY
     Route: 065
  3. MOXIFLOXACIN. [Suspect]
     Active Substance: MOXIFLOXACIN
     Indication: PRODUCT USED FOR UNKNOWN INDICATION
     Dosage: UNK UNK, 3 TIMES A DAY
     Route: 047
  4. PREDNISOLONE SODIUM PHOSPHATE. [Suspect]
     Active Substance: PREDNISOLONE SODIUM PHOSPHATE
     Dosage: 50 MILLIGRAM, ONCE A DAY
     Route: 065
  5. MOXIFLOXACIN. [Suspect]
     Active Substance: MOXIFLOXACIN
     Dosage: 1 DOSAGE FORM, ONCE A DAY
     Route: 065
  6. NASONEX [Suspect]
     Active Substance: MOMETASONE FUROATE
     Dosage: 1 DOSAGE FORM, ONCE A DAY
     Route: 006
  7. PREDNISOLONE ACETATE. [Suspect]
     Active Substance: PREDNISOLONE ACETATE
     Indication: PRODUCT USED FOR UNKNOWN INDICATION
     Dosage: UNK UNK, FOUR TIMES/DAY
     Route: 065
  8. PREDNISOLONE ACETATE. [Suspect]
     Active Substance: PREDNISOLONE ACETATE
     Dosage: 3 DOSAGE FORM, ONCE A DAY
     Route: 065
  9. AMLODIPINE [Suspect]
     Active Substance: AMLODIPINE BESYLATE
     Indication: HYPERTENSION
     Dosage: 10 MILLIGRAM, ONCE A DAY
     Route: 048
  10. BESIVANCE [Suspect]
     Active Substance: BESIFLOXACIN
     Indication: PRODUCT USED FOR UNKNOWN INDICATION
     Dosage: UNK UNK, 3 TIMES A DAY
     Route: 047
  11. BETOPTIC [Suspect]
     Active Substance: BETAXOLOL HYDROCHLORIDE
     Dosage: UNK UNK, ONCE A DAY
     Route: 047
  12. PREDNISOLONE ACETATE. [Suspect]
     Active Substance: PREDNISOLONE ACETATE
     Dosage: 1 DOSAGE FORM, ONCE A DAY
     Route: 065
  13. PREDNISOLONE ACETATE. [Suspect]
     Active Substance: PREDNISOLONE ACETATE
     Dosage: 50 MILLIGRAM, 3 TIMES A DAY
     Route: 065
  14. MOXIFLOXACIN. [Suspect]
     Active Substance: MOXIFLOXACIN
     Dosage: UNK UNK, ONCE A DAY
     Route: 047
  15. BESIVANCE [Suspect]
     Active Substance: BESIFLOXACIN
     Dosage: 3 GTT DROPS, ONCE A DAY
     Route: 047
  16. BETOPTIC [Suspect]
     Active Substance: BETAXOLOL HYDROCHLORIDE
     Dosage: UNK, ONCE A DAY
     Route: 065
  17. CIALIS [Suspect]
     Active Substance: TADALAFIL
     Dosage: 2 DOSAGE FORM, ONCE A DAY
     Route: 065
  18. CIALIS [Suspect]
     Active Substance: TADALAFIL
     Dosage: 1 DOSAGE FORM, ONCE A DAY
     Route: 065
  19. EPIPEN JR [Suspect]
     Active Substance: EPINEPHRINE
     Indication: DRUG HYPERSENSITIVITY
     Dosage: UNK, AS NECESSARY
     Route: 030
  20. PREDNISOLONE ACETATE. [Suspect]
     Active Substance: PREDNISOLONE ACETATE
     Dosage: 2 DOSAGE FORM, ONCE A DAY
     Route: 065
  21. PREDNISOLONE ACETATE. [Suspect]
     Active Substance: PREDNISOLONE ACETATE
     Dosage: 50 MILLIGRAM, ONCE A DAY
     Route: 065
  22. PREDNISONE ACETATE [Suspect]
     Active Substance: PREDNISONE ACETATE
     Indication: PRODUCT USED FOR UNKNOWN INDICATION
     Dosage: 50 MILLIGRAM, 3 TIMES A DAY
     Route: 047
  23. EPIPEN [Suspect]
     Active Substance: EPINEPHRINE
     Indication: HYPERSENSITIVITY
  24. EPIPEN [Suspect]
     Active Substance: EPINEPHRINE
     Indication: HYPERSENSITIVITY
     Dosage: UNK
     Route: 065
  25. PREDNISOLONE SODIUM PHOSPHATE. [Suspect]
     Active Substance: PREDNISOLONE SODIUM PHOSPHATE
     Dosage: UNK, TWO TIMES A DAY
     Route: 065
  26. PREDNISOLONE SODIUM PHOSPHATE. [Suspect]
     Active Substance: PREDNISOLONE SODIUM PHOSPHATE
     Dosage: 4 DOSAGE FORM, ONCE A DAY
     Route: 065
  27. EPIPEN JR [Suspect]
     Active Substance: EPINEPHRINE
     Dosage: UNK
     Route: 030
  28. NASONEX [Suspect]
     Active Substance: MOMETASONE FUROATE
     Indication: PRODUCT USED FOR UNKNOWN INDICATION
     Dosage: 2 DOSAGE FORM, ONCE A DAY
     Route: 006
  29. PREDNISOLONE ACETATE. [Suspect]
     Active Substance: PREDNISOLONE ACETATE
     Dosage: UNK UNK, TWO TIMES A DAY
     Route: 065
  30. NASONEX [Suspect]
     Active Substance: MOMETASONE FUROATE
     Indication: PRODUCT USED FOR UNKNOWN INDICATION
     Dosage: 2 DOSAGE FORM, ONCE A DAY
     Route: 045
  31. PREDNISOLONE SODIUM PHOSPHATE. [Suspect]
     Active Substance: PREDNISOLONE SODIUM PHOSPHATE
     Indication: PRODUCT USED FOR UNKNOWN INDICATION
     Dosage: UNK, ONCE A DAY
     Route: 065
  32. PREDNISOLONE SODIUM PHOSPHATE. [Suspect]
     Active Substance: PREDNISOLONE SODIUM PHOSPHATE
     Dosage: 50 MILLIGRAM, 3 TIMES A DAY
     Route: 065
  33. BETOPTIC [Suspect]
     Active Substance: BETAXOLOL HYDROCHLORIDE
     Indication: PRODUCT USED FOR UNKNOWN INDICATION
     Dosage: 1 DOSAGE FORM, ONCE A DAY
     Route: 047
  34. EPIPEN JR [Suspect]
     Active Substance: EPINEPHRINE
     Indication: HYPERSENSITIVITY
     Dosage: UNK,AS REQUIRED
     Route: 030
  35. PREDNISOLONE ACETATE. [Suspect]
     Active Substance: PREDNISOLONE ACETATE
     Dosage: 4 DOSAGE FORM, ONCE A DAY
     Route: 065
  36. PREDNISONE ACETATE [Suspect]
     Active Substance: PREDNISONE ACETATE
     Dosage: 3 DOSAGE FORM, ONCE A DAY
     Route: 047
  37. PREDNISOLONE SODIUM PHOSPHATE. [Suspect]
     Active Substance: PREDNISOLONE SODIUM PHOSPHATE
     Dosage: UNK, 3 TIMES A DAY
     Route: 065
  38. MOXIFLOXACIN. [Suspect]
     Active Substance: MOXIFLOXACIN
     Indication: PRODUCT USED FOR UNKNOWN INDICATION
     Dosage: UNK UNK, 3 TIMES A DAY
     Route: 047
  39. BESIVANCE [Suspect]
     Active Substance: BESIFLOXACIN
     Dosage: 3 DOSAGE FORM, ONCE A DAY
     Route: 047
  40. BETOPTIC [Suspect]
     Active Substance: BETAXOLOL HYDROCHLORIDE
     Dosage: 1 GTT DROPS, ONCE A DAY
     Route: 047
  41. CIALIS [Suspect]
     Active Substance: TADALAFIL
     Indication: PRODUCT USED FOR UNKNOWN INDICATION
     Dosage: UNK, TWO TIMES A DAY
     Route: 065
  42. PREDNISOLONE ACETATE. [Suspect]
     Active Substance: PREDNISOLONE ACETATE
     Dosage: UNK UNK, 3 TIMES A DAY
     Route: 065
  43. EPIPEN [Suspect]
     Active Substance: EPINEPHRINE
     Indication: DRUG HYPERSENSITIVITY
  44. PREDNISOLONE SODIUM PHOSPHATE. [Suspect]
     Active Substance: PREDNISOLONE SODIUM PHOSPHATE
     Dosage: 2 DOSAGE FORM, ONCE A DAY
     Route: 065
  45. BESIVANCE [Suspect]
     Active Substance: BESIFLOXACIN
     Dosage: 1 DOSAGE FORM, ONCE A DAY
     Route: 065
  46. OLOPATADINE HYDROCHLORIDE. [Suspect]
     Active Substance: OLOPATADINE HYDROCHLORIDE
     Indication: PRODUCT USED FOR UNKNOWN INDICATION
     Dosage: UNK,AS REQUIRED
     Route: 047
  47. PREDNISONE ACETATE [Suspect]
     Active Substance: PREDNISONE ACETATE
     Dosage: 50 MILLIGRAM, ONCE A DAY
     Route: 047
  48. PREDNISONE ACETATE [Suspect]
     Active Substance: PREDNISONE ACETATE
     Indication: PRODUCT USED FOR UNKNOWN INDICATION
     Dosage: 50 MILLIGRAM, ONCE A DAY
     Route: 065
  49. EPIPEN [Suspect]
     Active Substance: EPINEPHRINE
     Indication: DRUG HYPERSENSITIVITY
     Dosage: UNK, AS REQUIRED
     Route: 030
  50. PREDNISOLONE SODIUM PHOSPHATE. [Suspect]
     Active Substance: PREDNISOLONE SODIUM PHOSPHATE
     Dosage: UNK, FOUR TIMES A DAY
     Route: 065

REACTIONS (1)
  - Hypersensitivity [Recovered/Resolved]
